FAERS Safety Report 11434370 (Version 1)
Quarter: 2015Q3

REPORT INFORMATION
  Report Type: Spontaneous
  Country: US (occurrence: None)
  Receive Date: 20150828
  Receipt Date: 20150828
  Transmission Date: 20151125
  Serious: No
  Sender: FDA-Public Use
  Company Number: None

PATIENT
  Age: 36 Year
  Sex: Female
  Weight: 83.92 kg

DRUGS (13)
  1. TYLENOL [Concomitant]
     Active Substance: ACETAMINOPHEN
  2. VALIUM [Concomitant]
     Active Substance: DIAZEPAM
  3. VISTARIL [Concomitant]
     Active Substance: HYDROXYZINE PAMOATE
  4. ZANTAC [Concomitant]
     Active Substance: RANITIDINE HYDROCHLORIDE
  5. TRAZODONE [Concomitant]
     Active Substance: TRAZODONE HYDROCHLORIDE
  6. PRILOSEC [Concomitant]
     Active Substance: OMEPRAZOLE MAGNESIUM
  7. CALTRATE [Concomitant]
     Active Substance: CALCIUM CARBONATE
  8. ROBAXIN [Concomitant]
     Active Substance: METHOCARBAMOL
  9. ASPIRIN. [Concomitant]
     Active Substance: ASPIRIN
  10. MULTIVITAMIN [Concomitant]
     Active Substance: VITAMINS
  11. NAPROXEN. [Concomitant]
     Active Substance: NAPROXEN
  12. PREDNISONE 20 MG [Suspect]
     Active Substance: PREDNISONE
     Indication: BACK PAIN
     Dosage: 3 PILLS ONCE DAILY TAKEN BY MOUTH
     Route: 048
  13. TORADOL [Concomitant]
     Active Substance: KETOROLAC TROMETHAMINE

REACTIONS (6)
  - Drug ineffective [None]
  - Back pain [None]
  - Facial pain [None]
  - Pain in extremity [None]
  - Pain in jaw [None]
  - Headache [None]

NARRATIVE: CASE EVENT DATE: 20150826
